FAERS Safety Report 10896075 (Version 1)
Quarter: 2015Q1

REPORT INFORMATION
  Report Type: Spontaneous
  Country: CO (occurrence: CO)
  Receive Date: 20150309
  Receipt Date: 20150309
  Transmission Date: 20150721
  Serious: Yes (Other)
  Sender: FDA-Public Use
  Company Number: CO-UCBSA-2015006590

PATIENT
  Age: 64 Year
  Sex: Female

DRUGS (4)
  1. AMANTADINE [Concomitant]
     Active Substance: AMANTADINE
     Indication: PRODUCT USED FOR UNKNOWN INDICATION
     Dosage: 100 MG, 2X/DAY (BID)
  2. NEUPRO [Suspect]
     Active Substance: ROTIGOTINE
     Indication: PARKINSON^S DISEASE
     Dosage: 4 MG, DAILY DOSE
     Route: 062
     Dates: start: 20130116, end: 20141001
  3. LEVODOPA/CARBIDOPA [Concomitant]
     Active Substance: CARBIDOPA\LEVODOPA
     Indication: PRODUCT USED FOR UNKNOWN INDICATION
     Dosage: LEVODOPA/CARBIDOPA/ENTACAPONE: 200/ 50/200 MG, 4X/DAY (QID)
  4. ENTACAPONE. [Concomitant]
     Active Substance: ENTACAPONE
     Indication: PRODUCT USED FOR UNKNOWN INDICATION
     Dosage: LEVODOPA/CARBIDOPA/ENTACAPONE: 200/ 50/200 MG, 4X/DAY (QID)

REACTIONS (2)
  - Intervertebral disc protrusion [Unknown]
  - Tachycardia [Recovered/Resolved]

NARRATIVE: CASE EVENT DATE: 201408
